FAERS Safety Report 23217288 (Version 1)
Quarter: 2023Q4

REPORT INFORMATION
  Report Type: Spontaneous
  Country: US (occurrence: None)
  Receive Date: 20231121
  Receipt Date: 20231121
  Transmission Date: 20240110
  Serious: Yes (Other)
  Sender: FDA-Public Use
  Company Number: None

PATIENT
  Age: 52 Year
  Sex: Female
  Weight: 72 kg

DRUGS (4)
  1. PREGABALIN [Suspect]
     Active Substance: PREGABALIN
     Indication: Restless legs syndrome
     Dosage: FREQUENCY : AT BEDTIME;?
     Route: 048
     Dates: start: 20200624, end: 20200626
  2. PREGABALIN [Suspect]
     Active Substance: PREGABALIN
     Indication: Periodic limb movement disorder
  3. GABAPENTIN [Suspect]
     Active Substance: GABAPENTIN
  4. ROPINIROLE [Suspect]
     Active Substance: ROPINIROLE

REACTIONS (8)
  - Paraesthesia [None]
  - Muscle twitching [None]
  - Insomnia [None]
  - Hot flush [None]
  - Dyskinesia [None]
  - Drug ineffective [None]
  - Change in sustained attention [None]
  - Pain [None]

NARRATIVE: CASE EVENT DATE: 20200626
